FAERS Safety Report 15575519 (Version 1)
Quarter: 2018Q4

REPORT INFORMATION
  Report Type: Spontaneous
  Country: BR (occurrence: BR)
  Receive Date: 20181101
  Receipt Date: 20181101
  Transmission Date: 20190205
  Serious: Yes (Other)
  Sender: FDA-Public Use
  Company Number: BR-PFIZER INC-2018441614

PATIENT
  Age: 70 Year
  Sex: Male

DRUGS (3)
  1. XALATAN [Suspect]
     Active Substance: LATANOPROST
  2. XALACOM [Suspect]
     Active Substance: LATANOPROST\TIMOLOL MALEATE
     Indication: OCULAR HYPERTENSION
     Dosage: 1 DROP IN EACH EYE PER DAY
     Route: 047
     Dates: start: 2016
  3. XALACOM [Suspect]
     Active Substance: LATANOPROST\TIMOLOL MALEATE
     Dosage: ONLY IN LEFT EYE
     Route: 047

REACTIONS (3)
  - Macular degeneration [Unknown]
  - Glaucoma [Unknown]
  - Cataract [Unknown]
